FAERS Safety Report 5636779-0 (Version None)
Quarter: 2008Q1

REPORT INFORMATION
  Report Type: 
  Country: None (occurrence: None)
  Receive Date: 20080225
  Receipt Date: 20080219
  Transmission Date: 20080703
  Serious: Yes (Other)
  Sender: FDA-Public Use
  Company Number: US-BAYER-200714857NA

PATIENT

DRUGS (2)
  1. LEUKINE [Suspect]
     Indication: DRUG USE FOR UNKNOWN INDICATION
  2. CORTISONE [Concomitant]
     Indication: EXOSTOSIS

REACTIONS (2)
  - ANKYLOSING SPONDYLITIS [None]
  - EXOSTOSIS [None]
